FAERS Safety Report 11465416 (Version 1)
Quarter: 2015Q3

REPORT INFORMATION
  Report Type: Spontaneous
  Country: US (occurrence: US)
  Receive Date: 20150907
  Receipt Date: 20150907
  Transmission Date: 20151125
  Serious: Yes (Other)
  Sender: FDA-Public Use
  Company Number: US-ACCORD-033488

PATIENT
  Age: 86 Year
  Sex: Female

DRUGS (3)
  1. LISINOPRIL ACCORD [Suspect]
     Active Substance: LISINOPRIL
     Indication: HYPERTENSION
     Dosage: STRENGTH: 20 MG.
     Route: 048
     Dates: start: 20150812, end: 20150817
  2. PREDNISONE. [Concomitant]
     Active Substance: PREDNISONE
     Dosage: STRENGTH: 2 MG
  3. LEVOTHYROXINE. [Concomitant]
     Active Substance: LEVOTHYROXINE
     Dosage: STRENGTH: 25 MCG

REACTIONS (3)
  - Blood pressure fluctuation [Recovered/Resolved]
  - Product substitution issue [Unknown]
  - Self-medication [Unknown]

NARRATIVE: CASE EVENT DATE: 20150812
